FAERS Safety Report 24911030 (Version 1)
Quarter: 2025Q1

REPORT INFORMATION
  Report Type: Spontaneous
  Country: IT (occurrence: IT)
  Receive Date: 20250131
  Receipt Date: 20250131
  Transmission Date: 20250408
  Serious: Yes (Other)
  Sender: ORGANON
  Company Number: None

PATIENT
  Age: 47 Year
  Sex: Male
  Weight: 85 kg

DRUGS (5)
  1. EZETIMIBE\SIMVASTATIN [Suspect]
     Active Substance: EZETIMIBE\SIMVASTATIN
     Indication: Dyslipidaemia
     Dosage: 1 TABLET/DAY 20/10
     Route: 048
     Dates: start: 20180504, end: 20190504
  2. EN [Suspect]
     Active Substance: DELORAZEPAM
     Indication: Anxiety
     Dosage: 0.5 MG X 2 TABLETS /DAY
     Route: 048
     Dates: start: 20240705, end: 20241008
  3. ABILIFY [Suspect]
     Active Substance: ARIPIPRAZOLE
     Indication: Bipolar disorder
     Route: 030
  4. EZATEROS [Concomitant]
     Dosage: 20/10 MG 1 TABLET/DAY; ACETYLSALICYLIC ACID 1 TABLET / DAY 100MG
  5. ASPIRIN [Concomitant]
     Active Substance: ASPIRIN
     Dosage: ACETYLSALICYLIC ACID 1 TABLET / DAY 100 MG

REACTIONS (10)
  - Psychomotor hyperactivity [Recovered/Resolved]
  - Tardive dyskinesia [Recovering/Resolving]
  - Tremor [Recovering/Resolving]
  - Tachycardia [Recovering/Resolving]
  - Cardiovascular disorder [Recovering/Resolving]
  - Dyslipidaemia [Recovering/Resolving]
  - Toxicity to various agents [Recovering/Resolving]
  - Fibromyalgia [Recovered/Resolved]
  - Medication error [Unknown]
  - Accidental overdose [Unknown]

NARRATIVE: CASE EVENT DATE: 20180504
